FAERS Safety Report 23306114 (Version 1)
Quarter: 2023Q4

REPORT INFORMATION
  Report Type: Spontaneous
  Country: FR (occurrence: FR)
  Receive Date: 20231218
  Receipt Date: 20231218
  Transmission Date: 20240110
  Serious: Yes (Other)
  Sender: FDA-Public Use
  Company Number: None

PATIENT
  Age: 53 Year
  Sex: Male
  Weight: 108 kg

DRUGS (1)
  1. DUPIXENT [Suspect]
     Active Substance: DUPILUMAB
     Indication: Nasal polyps
     Dosage: 1 DF, Q15D
     Route: 058
     Dates: start: 20230310, end: 20230519

REACTIONS (6)
  - Organising pneumonia [Recovering/Resolving]
  - Shoulder girdle pain [Unknown]
  - Arthralgia [Unknown]
  - Arthralgia [Unknown]
  - Weight decreased [Unknown]
  - Erythema [Recovered/Resolved]

NARRATIVE: CASE EVENT DATE: 20230410
